FAERS Safety Report 26012838 (Version 1)
Quarter: 2025Q4

REPORT INFORMATION
  Report Type: Report from Study
  Country: AR (occurrence: AR)
  Receive Date: 20251107
  Receipt Date: 20251107
  Transmission Date: 20260118
  Serious: Yes (Hospitalization, Other)
  Sender: TAKEDA
  Company Number: AR-TAKEDA-2025TUS098527

PATIENT
  Age: 14 Year
  Sex: Female

DRUGS (1)
  1. VELAGLUCERASE ALFA [Suspect]
     Active Substance: VELAGLUCERASE ALFA
     Indication: Gaucher^s disease
     Dosage: UNK UNK, Q2WEEKS
     Dates: start: 20200908

REACTIONS (2)
  - Poisoning [Recovering/Resolving]
  - Enterocolitis [Recovering/Resolving]

NARRATIVE: CASE EVENT DATE: 20251030
